FAERS Safety Report 18433479 (Version 2)
Quarter: 2021Q3

REPORT INFORMATION
  Report Type: Spontaneous
  Country: JP (occurrence: JP)
  Receive Date: 20201027
  Receipt Date: 20210831
  Transmission Date: 20211014
  Serious: Yes (Hospitalization, Other)
  Sender: FDA-Public Use
  Company Number: JP-LUNDBECK-DKLU3001969

PATIENT
  Age: 10 Year
  Sex: Female
  Weight: 27.2 kg

DRUGS (28)
  1. VIGABATRIN (FOR ORAL SOLUTION) [Suspect]
     Active Substance: VIGABATRIN
     Dosage: 750 MG, BID
     Route: 048
     Dates: start: 20201117
  2. ABILIFY [Concomitant]
     Active Substance: ARIPIPRAZOLE
     Indication: PRODUCT USED FOR UNKNOWN INDICATION
     Dosage: DAILY DOSE: 2 MG
     Route: 048
     Dates: end: 20190607
  3. VIGABATRIN (FOR ORAL SOLUTION) [Suspect]
     Active Substance: VIGABATRIN
     Indication: INFANTILE SPASMS
     Dosage: 350 MG, BID
     Route: 048
     Dates: start: 20181101, end: 20181118
  4. VIGABATRIN (FOR ORAL SOLUTION) [Suspect]
     Active Substance: VIGABATRIN
     Dosage: 625 MG, BID
     Route: 048
     Dates: start: 20200504, end: 20200713
  5. AMITIZA [Concomitant]
     Active Substance: LUBIPROSTONE
     Indication: PRODUCT USED FOR UNKNOWN INDICATION
     Dosage: DAILY DOSE: 24 UG
     Route: 048
     Dates: start: 20200415, end: 20201014
  6. VIGABATRIN (FOR ORAL SOLUTION) [Suspect]
     Active Substance: VIGABATRIN
     Dosage: 700 MG, BID
     Route: 048
     Dates: start: 20190307, end: 20190313
  7. VIGABATRIN (FOR ORAL SOLUTION) [Suspect]
     Active Substance: VIGABATRIN
     Dosage: 250 MG, BID
     Route: 048
     Dates: start: 20190325, end: 20190328
  8. VIGABATRIN (FOR ORAL SOLUTION) [Suspect]
     Active Substance: VIGABATRIN
     Dosage: 500 MG, BID
     Route: 048
     Dates: start: 20200121, end: 20200503
  9. VIGABATRIN (FOR ORAL SOLUTION) [Suspect]
     Active Substance: VIGABATRIN
     Dosage: 750 MG, BID
     Route: 048
     Dates: start: 20200714, end: 20201014
  10. INOVELON [Concomitant]
     Active Substance: RUFINAMIDE
     Dosage: DAILY DOSE 400 MG
     Route: 048
     Dates: start: 20190802
  11. MAGNESIUM OXIDE. [Concomitant]
     Active Substance: MAGNESIUM OXIDE
     Indication: PRODUCT USED FOR UNKNOWN INDICATION
     Dosage: DAILY DOSE: 660 MG
     Route: 048
     Dates: end: 20200414
  12. VIGABATRIN (FOR ORAL SOLUTION) [Suspect]
     Active Substance: VIGABATRIN
     Dosage: 850 MG, BID
     Route: 048
     Dates: start: 20190304, end: 20190306
  13. VALPROATE SODIUM. [Concomitant]
     Active Substance: VALPROATE SODIUM
     Indication: INFANTILE SPASMS
     Dosage: DAILY DOSE: 500 MG
     Route: 048
     Dates: end: 20190313
  14. RIVOTRIL [Concomitant]
     Active Substance: CLONAZEPAM
     Indication: INFANTILE SPASMS
     Dosage: DAILY DOSE: 0.75 MG
     Route: 048
  15. INOVELON [Concomitant]
     Active Substance: RUFINAMIDE
     Indication: INFANTILE SPASMS
     Dosage: DAILY DOSE: 600 MG
     Route: 048
     Dates: end: 20190403
  16. FYCOMPA [Concomitant]
     Active Substance: PERAMPANEL
     Indication: INFANTILE SPASMS
     Dosage: DAILY DOSE: 2 MG
     Route: 048
     Dates: end: 20190121
  17. AMITIZA [Concomitant]
     Active Substance: LUBIPROSTONE
     Dosage: DAILY DOSE: 48 UG
     Route: 048
     Dates: start: 20201015
  18. YOKUKANSAN [Concomitant]
     Active Substance: HERBALS
     Indication: PRODUCT USED FOR UNKNOWN INDICATION
     Dosage: DAILY DOSE: 7.5 G
     Route: 048
     Dates: start: 20190514, end: 20200413
  19. VIGABATRIN (FOR ORAL SOLUTION) [Suspect]
     Active Substance: VIGABATRIN
     Dosage: 700 MG, BID
     Route: 048
     Dates: start: 20181119, end: 20190303
  20. VIGABATRIN (FOR ORAL SOLUTION) [Suspect]
     Active Substance: VIGABATRIN
     Dosage: 400 MG, BID
     Route: 048
     Dates: start: 20191225, end: 20200120
  21. FYCOMPA [Concomitant]
     Active Substance: PERAMPANEL
     Dosage: DAILY DOSE: 3 MG
     Route: 048
     Dates: start: 20190122, end: 20190403
  22. VIGABATRIN (FOR ORAL SOLUTION) [Suspect]
     Active Substance: VIGABATRIN
     Dosage: 500 MG, BID
     Route: 048
     Dates: start: 20190314, end: 20190324
  23. VALPROATE SODIUM. [Concomitant]
     Active Substance: VALPROATE SODIUM
     Dosage: DAILY DOSE: 600 MG
     Route: 048
     Dates: start: 20190314, end: 20190407
  24. VALPROATE SODIUM. [Concomitant]
     Active Substance: VALPROATE SODIUM
     Dosage: DAILY DOSE: 700 MG
     Route: 048
     Dates: start: 20190408
  25. FYCOMPA [Concomitant]
     Active Substance: PERAMPANEL
     Dosage: DAILY DOSE: 1 MG
     Route: 048
     Dates: start: 20191021
  26. PRANLUKAST [Concomitant]
     Active Substance: PRANLUKAST
     Indication: PRODUCT USED FOR UNKNOWN INDICATION
     Dosage: DAILY DOSE: 260MG
     Route: 065
  27. YOKUKANSAN [Concomitant]
     Active Substance: HERBALS
     Dosage: DAILY DOSE: 3 G
     Route: 048
     Dates: start: 20200414
  28. VIGABATRIN (FOR ORAL SOLUTION) [Suspect]
     Active Substance: VIGABATRIN
     Dosage: 1000 MG, BID
     Route: 048
     Dates: start: 20201015, end: 20201116

REACTIONS (6)
  - Drug ineffective [Unknown]
  - Seizure cluster [Recovering/Resolving]
  - Hypochromic anaemia [Recovering/Resolving]
  - White blood cell count increased [Recovered/Resolved]
  - Seizure cluster [Recovering/Resolving]
  - Seizure cluster [Recovering/Resolving]

NARRATIVE: CASE EVENT DATE: 20190222
